FAERS Safety Report 24276093 (Version 1)
Quarter: 2024Q3

REPORT INFORMATION
  Report Type: Spontaneous
  Country: DE (occurrence: None)
  Receive Date: 20240903
  Receipt Date: 20240903
  Transmission Date: 20241017
  Serious: Yes (Life-Threatening)
  Sender: ASTRAZENECA
  Company Number: 2024A197688

PATIENT
  Age: 29478 Day
  Sex: Female
  Weight: 78 kg

DRUGS (10)
  1. DAPAGLIFLOZIN [Suspect]
     Active Substance: DAPAGLIFLOZIN
     Indication: Cardiac failure
     Dosage: 10
     Route: 048
  2. PANTOZOL [Concomitant]
     Active Substance: PANTOPRAZOLE SODIUM
  3. LERCANITIPIN [Concomitant]
  4. ATORASTATIN [Concomitant]
  5. ASPIRIN [Concomitant]
     Active Substance: ASPIRIN
  6. PREGABALIN [Concomitant]
     Active Substance: PREGABALIN
  7. PRAMIPEXOLE [Concomitant]
     Active Substance: PRAMIPEXOLE\PRAMIPEXOLE DIHYDROCHLORIDE
  8. CANDESARTAN [Concomitant]
     Active Substance: CANDESARTAN
  9. AMILORIDE\BENDROFLUMETHIAZIDE [Concomitant]
     Active Substance: AMILORIDE\BENDROFLUMETHIAZIDE
  10. COTRIM [Concomitant]
     Active Substance: SULFAMETHOXAZOLE\TRIMETHOPRIM
     Indication: Urinary tract infection

REACTIONS (1)
  - Glomerular filtration rate decreased [Recovered/Resolved]

NARRATIVE: CASE EVENT DATE: 20240807
